FAERS Safety Report 9452520 (Version 1)
Quarter: 2013Q3

REPORT INFORMATION
  Report Type: Spontaneous
  Country: US (occurrence: US)
  Receive Date: 20130812
  Receipt Date: 20130812
  Transmission Date: 20140515
  Serious: Yes (Other)
  Sender: FDA-Public Use
  Company Number: US-PFIZER INC-2013228781

PATIENT
  Age: 70 Year
  Sex: Male
  Weight: 104.31 kg

DRUGS (6)
  1. TOVIAZ [Suspect]
     Indication: HYPERTONIC BLADDER
     Dosage: 8 MG, 1X/DAY
     Route: 048
     Dates: start: 201307, end: 201307
  2. TOVIAZ [Suspect]
     Dosage: 4 MG, 1X/DAY
     Route: 048
     Dates: start: 201307
  3. METFORMIN [Concomitant]
     Indication: DIABETES MELLITUS
     Dosage: UNK
  4. WELLBUTRIN [Concomitant]
     Dosage: UNK
  5. LABETALOL [Concomitant]
     Indication: HYPERTENSION
     Dosage: UNK
  6. AZOR [Concomitant]
     Indication: HYPERTENSION
     Dosage: UNK

REACTIONS (3)
  - Urinary retention [Unknown]
  - Dizziness [Unknown]
  - Somnolence [Unknown]
